FAERS Safety Report 10252261 (Version 3)
Quarter: 2015Q2

REPORT INFORMATION
  Report Type: Spontaneous
  Country: US (occurrence: US)
  Receive Date: 20140623
  Receipt Date: 20150528
  Transmission Date: 20150821
  Serious: Yes (Death, Life-Threatening, Hospitalization, Other)
  Sender: FDA-Public Use
  Company Number: US-009507513-1406USA009651

PATIENT
  Sex: Female
  Weight: 118.82 kg

DRUGS (1)
  1. JANUVIA [Suspect]
     Active Substance: SITAGLIPTIN PHOSPHATE
     Indication: TYPE 2 DIABETES MELLITUS
     Dosage: 100 MG, QD
     Route: 048
     Dates: start: 20090902, end: 20110118

REACTIONS (31)
  - Death [Fatal]
  - Rotator cuff repair [Unknown]
  - Vitamin B12 deficiency [Unknown]
  - Chronic kidney disease [Not Recovered/Not Resolved]
  - Depression [Unknown]
  - Hypertension [Unknown]
  - Nephropathy [Unknown]
  - Decubitus ulcer [Unknown]
  - Arthralgia [Unknown]
  - Oedema peripheral [Unknown]
  - Iron deficiency anaemia [Unknown]
  - Eczema [Unknown]
  - Appendicectomy [Unknown]
  - Urinary tract infection [Unknown]
  - Coronary artery disease [Unknown]
  - Gastrooesophageal reflux disease [Unknown]
  - Metastases to liver [Unknown]
  - Biopsy liver [Unknown]
  - Glaucoma [Unknown]
  - Hyperlipidaemia [Unknown]
  - Knee arthroplasty [Unknown]
  - Upper respiratory tract infection [Unknown]
  - Adenocarcinoma pancreas [Unknown]
  - Diabetes mellitus inadequate control [Unknown]
  - Diverticulitis [Unknown]
  - Sleep apnoea syndrome [Unknown]
  - Sleep disorder [Unknown]
  - Cholecystectomy [Unknown]
  - Cough [Unknown]
  - Aortic stenosis [Unknown]
  - Lipoma [Unknown]

NARRATIVE: CASE EVENT DATE: 20090902
